FAERS Safety Report 7980716-0 (Version None)
Quarter: 2011Q4

REPORT INFORMATION
  Report Type: 
  Country: None (occurrence: None)
  Receive Date: 20111214
  Receipt Date: 20110908
  Transmission Date: 20120403
  Serious: No
  Sender: FDA-Public Use
  Company Number: US-BAYER-2011-083673

PATIENT
  Age: 45 Year

DRUGS (1)
  1. AVELOX [Suspect]
     Indication: PRODUCT USED FOR UNKNOWN INDICATION
     Dosage: UNK
     Dates: start: 20110201

REACTIONS (2)
  - PARAESTHESIA [None]
  - HYPOAESTHESIA [None]
